FAERS Safety Report 9109027 (Version 1)
Quarter: 2013Q1

REPORT INFORMATION
  Report Type: Spontaneous
  Country: US (occurrence: US)
  Receive Date: 20130222
  Receipt Date: 20130222
  Transmission Date: 20140127
  Serious: Yes (Hospitalization, Other)
  Sender: FDA-Public Use
  Company Number: US-TEVA-387472USA

PATIENT
  Age: 76 Year
  Sex: Male

DRUGS (3)
  1. CLOPIDOGREL [Suspect]
     Route: 065
  2. SIMVASTATIN [Concomitant]
     Route: 065
  3. TAMSULOSIN [Concomitant]
     Route: 065

REACTIONS (3)
  - Vascular skin disorder [Recovered/Resolved]
  - Gangrene [Recovered/Resolved]
  - Thrombosis [Recovered/Resolved]
